FAERS Safety Report 7137942-2 (Version None)
Quarter: 2010Q4

REPORT INFORMATION
  Report Type: 
  Country: None (occurrence: None)
  Receive Date: 20101118
  Receipt Date: 20101105
  Transmission Date: 20110411
  Serious: Yes (Other)
  Sender: FDA-Public Use
  Company Number: 2010PV000094

PATIENT
  Age: 57 Year
  Sex: Male

DRUGS (7)
  1. DEPOCYT [Suspect]
     Indication: PROPHYLAXIS
     Dosage: 50 MG;Q3W; INTH
     Route: 037
  2. RITUXIMAB [Concomitant]
  3. IFOSFAMIDE [Concomitant]
  4. CARBOPLATIN [Concomitant]
  5. ETOPOSIDE [Concomitant]
  6. HYDROCORTISONE [Concomitant]
  7. DEXAMETHASONE [Concomitant]

REACTIONS (15)
  - BENIGN INTRACRANIAL HYPERTENSION [None]
  - CAUDA EQUINA SYNDROME [None]
  - CONUS MEDULLARIS SYNDROME [None]
  - COUGH [None]
  - DEFAECATION URGENCY [None]
  - ERECTILE DYSFUNCTION [None]
  - HEADACHE [None]
  - HYPOAESTHESIA [None]
  - INCONTINENCE [None]
  - NERVOUS SYSTEM DISORDER [None]
  - PAPILLOEDEMA [None]
  - PHONOPHOBIA [None]
  - PHOTOPHOBIA [None]
  - SNEEZING [None]
  - VISION BLURRED [None]
